FAERS Safety Report 9384993 (Version 3)
Quarter: 2013Q3

REPORT INFORMATION
  Report Type: Spontaneous
  Country: GB (occurrence: GB)
  Receive Date: 20130705
  Receipt Date: 20130923
  Transmission Date: 20140515
  Serious: Yes (Death)
  Sender: FDA-Public Use
  Company Number: GB-ASTELLAS-2013US006900

PATIENT
  Age: 7 Year
  Sex: Male

DRUGS (2)
  1. AMBISOME [Suspect]
     Indication: FUNGAL INFECTION
     Dosage: UNK
     Route: 065
     Dates: start: 201305
  2. AMBISOME [Suspect]
     Dosage: UNK
     Route: 065
     Dates: start: 201301

REACTIONS (2)
  - Drug ineffective [Unknown]
  - Fungal infection [Fatal]
